FAERS Safety Report 21102935 (Version 1)
Quarter: 2022Q3

REPORT INFORMATION
  Report Type: Spontaneous
  Country: US (occurrence: US)
  Receive Date: 20220720
  Receipt Date: 20220720
  Transmission Date: 20221027
  Serious: No
  Sender: FDA-Public Use
  Company Number: US-BRISTOL-MYERS SQUIBB COMPANY-2022-014678

PATIENT
  Age: 81 Year
  Sex: Female

DRUGS (3)
  1. IDHIFA [Suspect]
     Active Substance: ENASIDENIB MESYLATE
     Indication: Acute myeloid leukaemia
     Route: 048
     Dates: start: 20200922
  2. HYPERNIL [LISINOPRIL] [Concomitant]
     Indication: Product used for unknown indication
  3. FLECAINIDE ACETATE [Concomitant]
     Active Substance: FLECAINIDE ACETATE
     Indication: Product used for unknown indication
     Dates: start: 20200922

REACTIONS (2)
  - Blood pressure increased [Unknown]
  - No adverse event [Unknown]
